FAERS Safety Report 7892629-3 (Version None)
Quarter: 2011Q4

REPORT INFORMATION
  Report Type: 
  Country: None (occurrence: None)
  Receive Date: 20111102
  Receipt Date: 20111025
  Transmission Date: 20120403
  Serious: Yes (Hospitalization, Other)
  Sender: FDA-Public Use
  Company Number: 2011SP025614

PATIENT
  Age: 31 Year
  Sex: Female
  Weight: 61.2356 kg

DRUGS (1)
  1. NUVARING [Suspect]
     Indication: MENSTRUATION IRREGULAR
     Dates: start: 20090518, end: 20090601

REACTIONS (8)
  - DEEP VEIN THROMBOSIS [None]
  - SYNCOPE [None]
  - SMALL INTESTINAL OBSTRUCTION [None]
  - ANXIETY [None]
  - HYPERCHLORHYDRIA [None]
  - VESSEL PUNCTURE SITE PAIN [None]
  - PULMONARY EMBOLISM [None]
  - VESSEL PUNCTURE SITE SWELLING [None]
